FAERS Safety Report 13257612 (Version 1)
Quarter: 2017Q1

REPORT INFORMATION
  Report Type: Spontaneous
  Country: SE (occurrence: SE)
  Receive Date: 20170221
  Receipt Date: 20170221
  Transmission Date: 20170428
  Serious: Yes (Hospitalization, Other)
  Sender: FDA-Public Use
  Company Number: SE-ABBVIE-16P-150-1810538-00

PATIENT
  Age: 50 Year
  Sex: Female

DRUGS (2)
  1. DUODOPA [Suspect]
     Active Substance: CARBIDOPA\LEVODOPA
     Indication: PARKINSON^S DISEASE
     Route: 050
  2. DUODOPA [Suspect]
     Active Substance: CARBIDOPA\LEVODOPA
     Route: 050

REACTIONS (11)
  - Parkinson^s disease [Not Recovered/Not Resolved]
  - Neuropathy peripheral [Unknown]
  - Hallucination [Recovered/Resolved]
  - Procedural pain [Recovered/Resolved]
  - Underdose [Recovered/Resolved]
  - Device kink [Recovered/Resolved]
  - Gastric perforation [Recovered/Resolved]
  - Device loosening [Recovered/Resolved]
  - Polyneuropathy [Unknown]
  - Vitamin B6 deficiency [Unknown]
  - Incorrect dose administered [Recovered/Resolved]

NARRATIVE: CASE EVENT DATE: 201609
